FAERS Safety Report 15951484 (Version 2)
Quarter: 2019Q1

REPORT INFORMATION
  Report Type: Spontaneous
  Country: US (occurrence: US)
  Receive Date: 20190212
  Receipt Date: 20190314
  Transmission Date: 20190417
  Serious: Yes (Other)
  Sender: FDA-Public Use
  Company Number: US-COVIS PHARMA B.V.-2019COV00061

PATIENT
  Sex: Female

DRUGS (1)
  1. SULAR [Suspect]
     Active Substance: NISOLDIPINE

REACTIONS (3)
  - Shock [Unknown]
  - Hypersensitivity [Unknown]
  - Loss of consciousness [Unknown]
